FAERS Safety Report 19217380 (Version 2)
Quarter: 2021Q2

REPORT INFORMATION
  Report Type: Spontaneous
  Country: CH (occurrence: CH)
  Receive Date: 20210505
  Receipt Date: 20210511
  Transmission Date: 20210717
  Serious: Yes (Hospitalization)
  Sender: FDA-Public Use
  Company Number: CH-TEVA-2021-CH-1906995

PATIENT
  Sex: Male

DRUGS (8)
  1. BISOPROLOL [Suspect]
     Active Substance: BISOPROLOL
     Dosage: LATER DOSE INCREASED
     Route: 065
  2. TAXOFIT [Suspect]
     Active Substance: MINERALS\VITAMINS
     Indication: HYPOTHYROIDISM
     Route: 065
  3. THYBON [Suspect]
     Active Substance: LIOTHYRONINE HYDROCHLORIDE
     Indication: HORMONE REPLACEMENT THERAPY
     Dosage: THYBON AVENSIS
     Route: 065
  4. BISOPROLOL [Suspect]
     Active Substance: BISOPROLOL
     Indication: HYPERTENSION
     Route: 065
  5. BROMAZEPAM [Concomitant]
     Active Substance: BROMAZEPAM
     Indication: NERVOUSNESS
     Route: 065
  6. TESTOSTERONE. [Suspect]
     Active Substance: TESTOSTERONE
     Indication: MUSCLE BUILDING THERAPY
     Route: 048
  7. EPHEDRINE. [Concomitant]
     Active Substance: EPHEDRINE
     Indication: PRODUCT USED FOR UNKNOWN INDICATION
     Route: 065
  8. NOVOTHYRAL [Suspect]
     Active Substance: LEVOTHYROXINE SODIUM\LIOTHYRONINE SODIUM
     Indication: HORMONE REPLACEMENT THERAPY
     Dosage: NOVOTHYRAL (T3 AND T4)
     Route: 065

REACTIONS (12)
  - Prescription drug used without a prescription [Unknown]
  - Diplegia [Recovered/Resolved]
  - Blood follicle stimulating hormone decreased [Recovered/Resolved]
  - Atrioventricular block [Recovering/Resolving]
  - Hyperthyroidism [Recovered/Resolved]
  - Symptom masked [Recovered/Resolved]
  - Hypokalaemia [Recovered/Resolved]
  - Electrocardiogram ST segment depression [Recovering/Resolving]
  - Blood luteinising hormone decreased [Recovered/Resolved]
  - Guillain-Barre syndrome [Recovered/Resolved]
  - Intentional product misuse [Unknown]
  - Electrocardiogram QRS complex prolonged [Recovering/Resolving]
